FAERS Safety Report 8347413-3 (Version None)
Quarter: 2012Q2

REPORT INFORMATION
  Report Type: 
  Country: None (occurrence: None)
  Receive Date: 20120509
  Receipt Date: 20120428
  Transmission Date: 20120825
  Serious: No
  Sender: FDA-Public Use
  Company Number: US-ROXANE LABORATORIES, INC.-2012-RO-01167RO

PATIENT
  Sex: Male

DRUGS (1)
  1. METHADONE HCL [Suspect]
     Indication: BACK PAIN
     Dosage: 40 MG
     Route: 048

REACTIONS (1)
  - PAIN [None]
